FAERS Safety Report 5842534-9 (Version None)
Quarter: 2008Q3

REPORT INFORMATION
  Report Type: 
  Country: None (occurrence: None)
  Receive Date: 20080812
  Receipt Date: 20080731
  Transmission Date: 20090109
  Serious: Yes (Congenital Anomaly)
  Sender: FDA-Public Use
  Company Number: US-PFIZER INC-2007095392

PATIENT
  Sex: Female

DRUGS (1)
  1. ZOLOFT [Suspect]
     Route: 064

REACTIONS (4)
  - ATRIAL SEPTAL DEFECT [None]
  - DRUG EXPOSURE DURING PREGNANCY [None]
  - PATENT DUCTUS ARTERIOSUS [None]
  - VENTRICULAR SEPTAL DEFECT [None]
